FAERS Safety Report 18682590 (Version 2)
Quarter: 2021Q1

REPORT INFORMATION
  Report Type: Report from Study
  Country: None (occurrence: CA)
  Receive Date: 20201229
  Receipt Date: 20210113
  Transmission Date: 20210419
  Serious: Yes (Other)
  Sender: FDA-Public Use
  Company Number: CA-ABBVIE-20K-028-3695506-00

PATIENT
  Age: 44 Year
  Sex: Female

DRUGS (2)
  1. HUMIRA [Suspect]
     Active Substance: ADALIMUMAB
     Route: 058
     Dates: start: 202006, end: 2020
  2. HUMIRA [Suspect]
     Active Substance: ADALIMUMAB
     Indication: PSORIATIC ARTHROPATHY
     Route: 058
     Dates: start: 20131129, end: 202005

REACTIONS (10)
  - Oedema [Unknown]
  - Psoriatic arthropathy [Not Recovered/Not Resolved]
  - Addison^s disease [Not Recovered/Not Resolved]
  - Sciatica [Unknown]
  - Vascular rupture [Not Recovered/Not Resolved]
  - Illness [Unknown]
  - Lyme disease [Not Recovered/Not Resolved]
  - Mobility decreased [Unknown]
  - Feeling abnormal [Not Recovered/Not Resolved]
  - Chronic kidney disease [Not Recovered/Not Resolved]

NARRATIVE: CASE EVENT DATE: 201808
